FAERS Safety Report 9096882 (Version 1)
Quarter: 2013Q1

REPORT INFORMATION
  Report Type: Spontaneous
  Country: IT (occurrence: IT)
  Receive Date: 20130211
  Receipt Date: 20130211
  Transmission Date: 20140127
  Serious: Yes (Hospitalization)
  Sender: FDA-Public Use
  Company Number: IT-BRISTOL-MYERS SQUIBB COMPANY-17334855

PATIENT
  Age: 85 Year
  Sex: Female

DRUGS (7)
  1. COUMADIN TABS 5 MG [Suspect]
     Dosage: 27-JUL-2012
     Route: 048
     Dates: start: 20120101, end: 20120727
  2. NEBILOX [Concomitant]
  3. ANTRA [Concomitant]
     Dosage: TABS
     Route: 048
  4. FERRO-GRADUMET [Concomitant]
     Dosage: TABS
     Route: 048
  5. MANIDIPINE [Concomitant]
     Dosage: TABS
     Route: 048
  6. KARVEZIDE [Concomitant]
     Dosage: 1DF:150/12.5 MG TABLETS
     Route: 048
  7. LANOXIN [Concomitant]
     Dosage: TABS
     Route: 048

REACTIONS (6)
  - Haemarthrosis [Recovering/Resolving]
  - Heart sounds abnormal [Recovering/Resolving]
  - Melaena [Recovering/Resolving]
  - Pallor [Recovering/Resolving]
  - Haemorrhage [Recovering/Resolving]
  - Overdose [Unknown]
